FAERS Safety Report 10431489 (Version 1)
Quarter: 2014Q3

REPORT INFORMATION
  Report Type: Report from Study
  Country: BR (occurrence: BR)
  Receive Date: 20140904
  Receipt Date: 20140904
  Transmission Date: 20150326
  Serious: Yes (Other)
  Sender: FDA-Public Use
  Company Number: BR-ABBVIE-14K-020-1278132-00

PATIENT
  Age: 70 Year
  Sex: Female
  Weight: 57 kg

DRUGS (9)
  1. UNSPECIFIED CORTICOID [Suspect]
     Active Substance: UNSPECIFIED INGREDIENT
  2. ARAVA [Concomitant]
     Active Substance: LEFLUNOMIDE
     Indication: ARTHRITIS
     Route: 048
  3. RISEDRONATE [Concomitant]
     Active Substance: RISEDRONATE SODIUM
     Indication: OSTEOPOROSIS
     Route: 048
  4. PARACETAMOL [Concomitant]
     Active Substance: ACETAMINOPHEN
     Indication: PRODUCT USED FOR UNKNOWN INDICATION
     Route: 048
     Dates: start: 201402
  5. UNSPECIFIED CORTICOID [Suspect]
     Active Substance: UNSPECIFIED INGREDIENT
  6. HUMIRA [Suspect]
     Active Substance: ADALIMUMAB
     Indication: RHEUMATOID ARTHRITIS
     Route: 058
  7. UNSPECIFIED CORTICOID [Suspect]
     Active Substance: UNSPECIFIED INGREDIENT
  8. UNSPECIFIED CORTICOID [Suspect]
     Active Substance: UNSPECIFIED INGREDIENT
     Indication: RHEUMATOID ARTHRITIS
  9. TOCILIZUMAB [Concomitant]
     Active Substance: TOCILIZUMAB
     Indication: PRODUCT USED FOR UNKNOWN INDICATION

REACTIONS (14)
  - Hand deformity [Not Recovered/Not Resolved]
  - Pain [Not Recovered/Not Resolved]
  - Gait disturbance [Not Recovered/Not Resolved]
  - Foot deformity [Not Recovered/Not Resolved]
  - Insomnia [Not Recovered/Not Resolved]
  - Activities of daily living impaired [Unknown]
  - Wrist deformity [Recovering/Resolving]
  - Urine analysis abnormal [Unknown]
  - Pain in extremity [Not Recovered/Not Resolved]
  - Eye swelling [Recovered/Resolved]
  - Arthritis [Not Recovered/Not Resolved]
  - Visual impairment [Recovered/Resolved]
  - Blood disorder [Unknown]
  - Drug ineffective [Unknown]

NARRATIVE: CASE EVENT DATE: 201405
